FAERS Safety Report 8547580-2 (Version None)
Quarter: 2012Q3

REPORT INFORMATION
  Report Type: 
  Country: None (occurrence: None)
  Receive Date: 20120727
  Receipt Date: 20120402
  Transmission Date: 20120928
  Serious: No
  Sender: FDA-Public Use
  Company Number: US-ASTRAZENECA-2012SE22492

PATIENT
  Age: 49 Year
  Sex: Male

DRUGS (3)
  1. SEROQUEL [Suspect]
     Route: 048
  2. NEXIUM [Concomitant]
  3. SEROQUEL [Suspect]
     Indication: BIPOLAR DISORDER
     Route: 048

REACTIONS (4)
  - DRUG EFFECT DECREASED [None]
  - ABNORMAL BEHAVIOUR [None]
  - TREMOR [None]
  - INTENTIONAL DRUG MISUSE [None]
